FAERS Safety Report 23191841 (Version 1)
Quarter: 2023Q4

REPORT INFORMATION
  Report Type: Spontaneous
  Country: CN (occurrence: CN)
  Receive Date: 20231116
  Receipt Date: 20231116
  Transmission Date: 20240110
  Serious: Yes (Hospitalization, Other)
  Sender: FDA-Public Use
  Company Number: CN-009507513-2311CHN003242

PATIENT
  Age: 56 Year
  Sex: Female
  Weight: 60 kg

DRUGS (3)
  1. CILASTATIN SODIUM\IMIPENEM [Suspect]
     Active Substance: CILASTATIN SODIUM\IMIPENEM
     Indication: Spontaneous bacterial peritonitis
     Dosage: 0.25 G, BID
     Route: 041
     Dates: start: 20231025, end: 20231029
  2. ALBUMIN HUMAN [Concomitant]
     Active Substance: ALBUMIN HUMAN
     Indication: Ascites
     Dosage: 100 MILLILITER, QD
     Route: 041
     Dates: start: 20231025, end: 20231027
  3. METOCLOPRAMIDE DIHYDROCHLORIDE [Concomitant]
     Active Substance: METOCLOPRAMIDE DIHYDROCHLORIDE
     Indication: Antiemetic supportive care
     Dosage: 10 MILLIGRAM, QD
     Dates: start: 20231025, end: 20231027

REACTIONS (6)
  - Epilepsy [Recovering/Resolving]
  - Uraemic encephalopathy [Unknown]
  - Electrolyte imbalance [Unknown]
  - Delirium [Unknown]
  - Delirium [Unknown]
  - Incorrect dose administered [Unknown]

NARRATIVE: CASE EVENT DATE: 20231001
